FAERS Safety Report 8509879-5 (Version None)
Quarter: 2012Q3

REPORT INFORMATION
  Report Type: 
  Country: None (occurrence: None)
  Receive Date: 20120713
  Receipt Date: 20120706
  Transmission Date: 20120928
  Serious: Yes (Hospitalization)
  Sender: FDA-Public Use
  Company Number: US-JNJFOC-20120606707

PATIENT
  Sex: Male
  Weight: 81.65 kg

DRUGS (3)
  1. DURAGESIC-100 [Suspect]
     Indication: PAIN
     Route: 062
  2. DURAGESIC-100 [Suspect]
     Route: 062
  3. AN UNKNOWN MEDICATION [Concomitant]
     Route: 065

REACTIONS (8)
  - WRONG TECHNIQUE IN DRUG USAGE PROCESS [None]
  - SPINAL COLUMN STENOSIS [None]
  - FATIGUE [None]
  - PRODUCT PACKAGING ISSUE [None]
  - SCIATICA [None]
  - PRODUCT QUALITY ISSUE [None]
  - PAIN [None]
  - DRY MOUTH [None]
